FAERS Safety Report 20520463 (Version 1)
Quarter: 2022Q1

REPORT INFORMATION
  Report Type: Spontaneous
  Country: GR (occurrence: GR)
  Receive Date: 20220225
  Receipt Date: 20220225
  Transmission Date: 20220424
  Serious: Yes (Hospitalization)
  Sender: FDA-Public Use
  Company Number: GR-MYLANLABS-2022M1015188

PATIENT
  Age: 5 Year
  Sex: Female

DRUGS (2)
  1. CYCLOSPORINE [Suspect]
     Active Substance: CYCLOSPORINE
     Indication: PSTPIP1-associated myeloid-related proteinaemia inflammatory syndrome
     Dosage: UNK
     Route: 065
  2. METHOTREXATE [Concomitant]
     Active Substance: METHOTREXATE
     Indication: PSTPIP1-associated myeloid-related proteinaemia inflammatory syndrome
     Dosage: 15 MILLIGRAM/SQ. METER, QW
     Route: 058

REACTIONS (2)
  - Splenomegaly [Unknown]
  - Neutropenia [Unknown]
